FAERS Safety Report 7013958-1 (Version None)
Quarter: 2010Q3

REPORT INFORMATION
  Report Type: 
  Country: None (occurrence: None)
  Receive Date: 20100924
  Receipt Date: 20100920
  Transmission Date: 20110219
  Serious: Yes (Hospitalization, Disabling, Other)
  Sender: FDA-Public Use
  Company Number: FI-AMGEN-US379504

PATIENT
  Sex: Female

DRUGS (1)
  1. ENBREL [Suspect]
     Indication: ANKYLOSING SPONDYLITIS
     Route: 058
     Dates: start: 20050101

REACTIONS (9)
  - ATLANTOAXIAL INSTABILITY [None]
  - DIZZINESS [None]
  - HEARING IMPAIRED [None]
  - LABYRINTHINE FISTULA [None]
  - MOOD SWINGS [None]
  - NAUSEA [None]
  - PINEAL GLAND CYST [None]
  - SALIVARY GLAND CYST [None]
  - TINNITUS [None]
